FAERS Safety Report 20885302 (Version 2)
Quarter: 2023Q1

REPORT INFORMATION
  Report Type: Other
  Country: US (occurrence: None)
  Receive Date: 20220527
  Receipt Date: 20230209
  Transmission Date: 20230417
  Serious: Yes (Other)
  Sender: FDA-Public Use
  Company Number: US-ROCHE-3104096

PATIENT
  Sex: Female
  Weight: 86.260 kg

DRUGS (5)
  1. OCREVUS [Suspect]
     Active Substance: OCRELIZUMAB
     Indication: Primary progressive multiple sclerosis
     Dosage: DATE OF TREATMENT: 28/MAY/2020, 14/MAY/2020, 03/DEC/2021, 03/JUN/2021, 01/DEC/2020
     Route: 042
     Dates: start: 201906
  2. OCREVUS [Suspect]
     Active Substance: OCRELIZUMAB
     Dosage: PROVIDED THROUGH PATIENT^S PORT ;ONGOING: YES
     Route: 042
     Dates: start: 202112
  3. OLMESARTAN [Concomitant]
     Active Substance: OLMESARTAN
     Indication: Blood pressure measurement
     Dosage: PER REPORTER 1- TAKES 12/5 MG ;ONGOING: UNKNOWN
     Route: 048
  4. OXYBUTYNIN [Concomitant]
     Active Substance: OXYBUTYNIN
     Indication: Bladder spasm
     Route: 048
     Dates: start: 202011
  5. CELEBREX [Concomitant]
     Active Substance: CELECOXIB
     Indication: Arthritis
     Route: 048

REACTIONS (4)
  - Influenza [Recovered/Resolved]
  - Kidney infection [Recovered/Resolved]
  - Fatigue [Unknown]
  - Drug ineffective [Unknown]

NARRATIVE: CASE EVENT DATE: 20220201
